FAERS Safety Report 10155472 (Version 1)
Quarter: 2014Q2

REPORT INFORMATION
  Report Type: Report from Study
  Country: US (occurrence: US)
  Receive Date: 20140506
  Receipt Date: 20140506
  Transmission Date: 20141212
  Serious: Yes (Other)
  Sender: FDA-Public Use
  Company Number: PHEH2014US008291

PATIENT
  Sex: Female

DRUGS (6)
  1. DIOVAN HCT [Suspect]
     Indication: HYPERTENSION
     Dosage: 1 DF (160 MG VALS/ 12.5 MG HYDR), QD
  2. DIOVAN HCT [Suspect]
     Dosage: UNK UKN, UNK
  3. HYDROCHLOROTHIAZIDE,VALSARTAN [Suspect]
     Indication: HYPERTENSION
     Dosage: 1 DF (160 MG VALS/ 12.5 MG HYDR), QD
  4. JANUVIA [Concomitant]
     Indication: DIABETES MELLITUS
     Dosage: 100 MG, UNK
  5. METFORMIN [Concomitant]
     Dosage: 1000 MG, QD
  6. ASPIRIN [Concomitant]
     Dosage: 81 MG, QD

REACTIONS (7)
  - Diabetes mellitus [Unknown]
  - Feeling abnormal [Unknown]
  - Abdominal discomfort [Unknown]
  - Nausea [Unknown]
  - Hypertension [Unknown]
  - Therapeutic response changed [Unknown]
  - Drug ineffective [Unknown]
